FAERS Safety Report 8917800 (Version 2)
Quarter: 2012Q4

REPORT INFORMATION
  Report Type: Report from Study
  Country: PL (occurrence: PL)
  Receive Date: 20121120
  Receipt Date: 20121205
  Transmission Date: 20130627
  Serious: Yes (Hospitalization)
  Sender: FDA-Public Use
  Company Number: PL-PFIZER INC-2012282338

PATIENT
  Age: 52 Year
  Sex: Female
  Weight: 100 kg

DRUGS (1)
  1. BOSUTINIB [Suspect]
     Indication: CHRONIC MYELOGENOUS LEUKEMIA
     Dosage: 500 mg, 1x/day
     Route: 048
     Dates: start: 20090305

REACTIONS (1)
  - Intervertebral disc disorder [Recovered/Resolved with Sequelae]
